FAERS Safety Report 9704267 (Version 1)
Quarter: 2013Q4

REPORT INFORMATION
  Report Type: Spontaneous
  Country: US (occurrence: US)
  Receive Date: 20131122
  Receipt Date: 20131122
  Transmission Date: 20140711
  Serious: Yes (Other)
  Sender: FDA-Public Use
  Company Number: US-ASTRAZENECA-2013SE84151

PATIENT
  Age: 73 Year
  Sex: Female
  Weight: 57.2 kg

DRUGS (11)
  1. NEXIUM [Suspect]
     Indication: GASTROOESOPHAGEAL REFLUX DISEASE
     Route: 048
     Dates: start: 2005, end: 2011
  2. NEXIUM [Suspect]
     Indication: GASTROOESOPHAGEAL REFLUX DISEASE
     Route: 048
     Dates: start: 2011, end: 2012
  3. NEXIUM [Suspect]
     Indication: GASTROOESOPHAGEAL REFLUX DISEASE
     Route: 048
     Dates: start: 2012, end: 20131110
  4. XYLOCAINE [Suspect]
     Route: 065
  5. ACCOLATE [Suspect]
     Route: 048
  6. DUONEB [Concomitant]
     Indication: CHRONIC OBSTRUCTIVE PULMONARY DISEASE
     Dosage: 0.5MG/3MG TWO TIMES A DAY
     Route: 055
  7. COMBIVENT [Concomitant]
     Indication: INHALATION THERAPY
     Dosage: PRN
     Route: 055
     Dates: start: 201310
  8. TUMS [Concomitant]
     Dosage: PRN
     Route: 048
  9. BENEFIBER [Concomitant]
     Route: 048
  10. XANAX [Concomitant]
     Indication: SOMNOLENCE
     Route: 048
  11. B12 [Concomitant]
     Dosage: MONTH
     Dates: start: 201205

REACTIONS (20)
  - Immune system disorder [Not Recovered/Not Resolved]
  - Pyrexia [Not Recovered/Not Resolved]
  - Lung infection [Unknown]
  - Laboratory test abnormal [Unknown]
  - Musculoskeletal discomfort [Unknown]
  - Throat irritation [Not Recovered/Not Resolved]
  - Road traffic accident [Recovered/Resolved]
  - Limb discomfort [Unknown]
  - Chronic obstructive pulmonary disease [Not Recovered/Not Resolved]
  - Pneumonia [Recovered/Resolved]
  - Diverticulitis [Not Recovered/Not Resolved]
  - Irritable bowel syndrome [Not Recovered/Not Resolved]
  - Colitis [Not Recovered/Not Resolved]
  - Influenza [Recovered/Resolved]
  - Body height decreased [Unknown]
  - Alopecia [Not Recovered/Not Resolved]
  - Alopecia [Not Recovered/Not Resolved]
  - Drug hypersensitivity [Unknown]
  - Off label use [Recovered/Resolved]
  - Drug dose omission [Not Recovered/Not Resolved]
